FAERS Safety Report 4285786-1 (Version None)
Quarter: 2004Q1

REPORT INFORMATION
  Report Type: 
  Country: None (occurrence: None)
  Receive Date: 20040203
  Receipt Date: 20040122
  Transmission Date: 20041129
  Serious: Yes (Hospitalization)
  Sender: FDA-Public Use
  Company Number: FI-JNJFOC-20040104341

PATIENT
  Age: 41 Year
  Sex: Male

DRUGS (5)
  1. INFLIXIMAB, RECOMBINANT- BLINDED (INFLIXIMAB, RECOMBINANT) LYOPHILIZED [Suspect]
     Indication: SCIATICA
     Dosage: 5 MG/KG, 1 IN 1 DAY, INTRAVENOUS
     Route: 042
     Dates: start: 20031107, end: 20031107
  2. PLACEBO (PLACEBO) LYOPHILIZED POWDER [Suspect]
     Indication: SCIATICA
     Dosage: INTRAVENOUS
     Route: 042
     Dates: start: 20031107, end: 20031107
  3. BEXTRA [Concomitant]
  4. TIZANIDINE HCL [Concomitant]
  5. PANACOD (PANADEINE CO) [Concomitant]

REACTIONS (2)
  - DRUG INEFFECTIVE [None]
  - SCIATICA [None]
